FAERS Safety Report 17900460 (Version 3)
Quarter: 2021Q1

REPORT INFORMATION
  Report Type: Spontaneous
  Country: JP (occurrence: JP)
  Receive Date: 20200616
  Receipt Date: 20210305
  Transmission Date: 20210419
  Serious: Yes (Hospitalization, Other)
  Sender: FDA-Public Use
  Company Number: JP-009507513-2006JPN000829J

PATIENT
  Age: 73 Year
  Sex: Male
  Weight: 43 kg

DRUGS (1)
  1. KEYTRUDA [Suspect]
     Active Substance: PEMBROLIZUMAB
     Indication: LUNG SQUAMOUS CELL CARCINOMA STAGE IV
     Dosage: 200 MILLIGRAM, Q3W
     Route: 041
     Dates: start: 20170502, end: 20190423

REACTIONS (6)
  - Immune-mediated enterocolitis [Recovered/Resolved]
  - Thrombophlebitis migrans [Recovered/Resolved]
  - Clostridium difficile colitis [Recovered/Resolved]
  - Cytomegalovirus enterocolitis [Recovered/Resolved]
  - Pneumonia bacterial [Recovered/Resolved]
  - Pneumocystis jirovecii pneumonia [Recovered/Resolved]

NARRATIVE: CASE EVENT DATE: 20190513
